FAERS Safety Report 6043916-5 (Version None)
Quarter: 2009Q1

REPORT INFORMATION
  Report Type: 
  Country: None (occurrence: None)
  Receive Date: 20090120
  Receipt Date: 20090113
  Transmission Date: 20090719
  Serious: Yes (Hospitalization, Other)
  Sender: FDA-Public Use
  Company Number: US-BIOGENIDEC-2008BI017506

PATIENT
  Age: 28 Year
  Sex: Female

DRUGS (1)
  1. TYSABRI [Suspect]
     Indication: MULTIPLE SCLEROSIS
     Route: 042
     Dates: start: 20080108, end: 20080528

REACTIONS (2)
  - ABORTION SPONTANEOUS [None]
  - PREGNANCY [None]
